FAERS Safety Report 10884841 (Version 2)
Quarter: 2015Q1

REPORT INFORMATION
  Report Type: Report from Study
  Country: GB (occurrence: GB)
  Receive Date: 20150304
  Receipt Date: 20150327
  Transmission Date: 20150721
  Serious: Yes (Hospitalization)
  Sender: FDA-Public Use
  Company Number: GB-JNJFOC-20150300218

PATIENT
  Age: 18 Year
  Sex: Male

DRUGS (8)
  1. SIMPONI [Suspect]
     Active Substance: GOLIMUMAB
     Indication: COLITIS ULCERATIVE
     Route: 058
     Dates: start: 20141106
  2. SIMPONI [Suspect]
     Active Substance: GOLIMUMAB
     Indication: COLITIS ULCERATIVE
     Dosage: AT 10:05 HOURS
     Route: 058
     Dates: start: 20141010
  3. GLYCERYL TRINITRATE [Concomitant]
     Active Substance: NITROGLYCERIN
     Route: 054
     Dates: start: 20141106, end: 20141112
  4. CLIPPER [Concomitant]
     Active Substance: BECLOMETHASONE DIPROPIONATE
     Route: 065
     Dates: start: 20140905
  5. PENTASA [Concomitant]
     Active Substance: MESALAMINE
     Route: 065
     Dates: start: 20131201
  6. SIMPONI [Suspect]
     Active Substance: GOLIMUMAB
     Indication: COLITIS ULCERATIVE
     Dosage: AT 11:50 HOURS
     Route: 058
     Dates: start: 20140926
  7. CIPROFLOXACIN. [Concomitant]
     Active Substance: CIPROFLOXACIN
     Route: 065
     Dates: start: 20141106, end: 20141112
  8. AZATHIOPRINE. [Concomitant]
     Active Substance: AZATHIOPRINE
     Route: 065
     Dates: start: 20131201

REACTIONS (1)
  - Anal abscess [Recovered/Resolved]

NARRATIVE: CASE EVENT DATE: 20141110
